FAERS Safety Report 8250414-7 (Version None)
Quarter: 2012Q2

REPORT INFORMATION
  Report Type: 
  Country: None (occurrence: None)
  Receive Date: 20120402
  Receipt Date: 20120327
  Transmission Date: 20120825
  Serious: Yes (Hospitalization, Other)
  Sender: FDA-Public Use
  Company Number: US-AMGEN-USASP2012017549

PATIENT
  Age: 12 Year
  Sex: Female
  Weight: 60.2 kg

DRUGS (12)
  1. EPOGEN [Suspect]
     Dosage: 3000 IU, 3 TIMES/WK
     Dates: start: 20120119, end: 20120216
  2. EPOGEN [Suspect]
     Indication: PERITONEAL DIALYSIS
     Dosage: 5000 IU, QWK
     Route: 058
     Dates: start: 20101018
  3. RENVELA [Concomitant]
     Dosage: UNK
     Dates: start: 20111103
  4. FERROUS SULFATE TAB [Concomitant]
     Dosage: UNK
     Dates: start: 20111018
  5. ROCALTROL [Concomitant]
     Dosage: UNK
     Dates: start: 20120119
  6. EPOGEN [Suspect]
     Dosage: 3000 IU, 2 TIMES/WK
     Dates: start: 20111018, end: 20111201
  7. RENA-VITE [Concomitant]
     Dosage: UNK
     Dates: start: 20111018
  8. EPOGEN [Suspect]
     Dosage: 5000 IU, 2 TIMES/WK
     Dates: start: 20120217, end: 20120229
  9. PREDNISONE TAB [Concomitant]
     Dosage: UNK
     Dates: start: 20120305
  10. EPOGEN [Suspect]
     Indication: ANAEMIA
     Dosage: 5000 IU, 3 TIMES/WK
     Dates: start: 20110909
  11. TACROLIMUS [Concomitant]
     Dosage: 1 MG, UNK
     Dates: end: 20120301
  12. EPOGEN [Suspect]
     Dosage: 5000 IU, 3 TIMES/WK
     Route: 058
     Dates: start: 20120301

REACTIONS (3)
  - ANAEMIA [None]
  - RASH [None]
  - DRUG INEFFECTIVE [None]
